FAERS Safety Report 5029939-3 (Version None)
Quarter: 2006Q2

REPORT INFORMATION
  Report Type: 
  Country: None (occurrence: None)
  Receive Date: 20060620
  Receipt Date: 20060614
  Transmission Date: 20061013
  Serious: Yes (Other)
  Sender: FDA-Public Use
  Company Number: GB-GLAXOSMITHKLINE-B0427970A

PATIENT
  Sex: Female

DRUGS (2)
  1. AUGMENTIN '125' [Suspect]
     Indication: CELLULITIS
     Route: 048
     Dates: start: 19901221, end: 19910101
  2. NYSTATIN [Concomitant]
     Route: 048
     Dates: start: 19901228, end: 19910104

REACTIONS (3)
  - CHROMATURIA [None]
  - JAUNDICE [None]
  - LIVER FUNCTION TEST ABNORMAL [None]
